FAERS Safety Report 24871926 (Version 1)
Quarter: 2025Q1

REPORT INFORMATION
  Report Type: Spontaneous
  Country: GB (occurrence: GB)
  Receive Date: 20250122
  Receipt Date: 20250122
  Transmission Date: 20250409
  Serious: Yes (Other)
  Sender: DEXCEL
  Company Number: None

PATIENT
  Age: 4 Day
  Sex: Male

DRUGS (1)
  1. CHLORHEXIDINE [Suspect]
     Active Substance: CHLORHEXIDINE
     Indication: Surgery
     Dates: start: 20250102

REACTIONS (1)
  - Chemical burn of skin [Recovering/Resolving]

NARRATIVE: CASE EVENT DATE: 20250106
